FAERS Safety Report 25552535 (Version 1)
Quarter: 2025Q3

REPORT INFORMATION
  Report Type: Spontaneous
  Country: US (occurrence: US)
  Receive Date: 20250715
  Receipt Date: 20250715
  Transmission Date: 20251021
  Serious: Yes (Other)
  Sender: COOPERSURGICAL
  Company Number: US-COOPERSURGICAL, INC.-2025CPS005347

PATIENT
  Age: 46 Year
  Sex: Female
  Weight: 89.796 kg

DRUGS (2)
  1. PARAGARD T 380A [Suspect]
     Active Substance: COPPER
     Indication: Contraception
     Route: 015
     Dates: start: 20120101
  2. OMEPRAZOLE [Concomitant]
     Active Substance: OMEPRAZOLE
     Dates: start: 2010, end: 2021

REACTIONS (9)
  - Reproductive complication associated with device [Not Recovered/Not Resolved]
  - Device breakage [Recovered/Resolved]
  - Foreign body in reproductive tract [Recovered/Resolved]
  - Complication of device removal [Recovered/Resolved]
  - Anaemia [Recovered/Resolved]
  - Emotional distress [Unknown]
  - Sexual dysfunction [Unknown]
  - Heavy menstrual bleeding [Recovered/Resolved]
  - Menstrual disorder [Unknown]

NARRATIVE: CASE EVENT DATE: 20210113
